FAERS Safety Report 6216115-1 (Version None)
Quarter: 2009Q2

REPORT INFORMATION
  Report Type: 
  Country: None (occurrence: None)
  Receive Date: 20090605
  Receipt Date: 20090528
  Transmission Date: 20091009
  Serious: Yes (Hospitalization)
  Sender: FDA-Public Use
  Company Number: CA-BRISTOL-MYERS SQUIBB COMPANY-14583546

PATIENT
  Age: 61 Year
  Sex: Female
  Weight: 41 kg

DRUGS (14)
  1. CETUXIMAB [Suspect]
     Indication: NON-SMALL CELL LUNG CANCER METASTATIC
     Dosage: INFUSION II ON 02APR09;III ON 09APR09;CYC 2 ON 16APR09;ADDITIONAL INFSNS ON 23APR09 AND 30APR09
     Route: 042
     Dates: start: 20090326, end: 20090326
  2. DOCETAXEL [Suspect]
     Indication: NON-SMALL CELL LUNG CANCER METASTATIC
     Dosage: ON 16APR09 CYCLE 2 - RECEIVED REDUCED DOSE OF DOCETAXEL
     Route: 042
     Dates: start: 20090326, end: 20090326
  3. MORPHINE [Concomitant]
     Indication: BACK PAIN
     Dates: start: 20080701, end: 20090409
  4. MORPHINE [Concomitant]
     Indication: PAIN IN EXTREMITY
     Dates: start: 20080701, end: 20090409
  5. STATEX [Concomitant]
     Indication: BACK PAIN
     Dosage: FREQUENCY: Q4HRS.
     Dates: start: 20080701
  6. STATEX [Concomitant]
     Indication: PAIN IN EXTREMITY
     Dosage: FREQUENCY: Q4HRS.
     Dates: start: 20080701
  7. DOCUSATE SODIUM [Concomitant]
     Indication: CONSTIPATION
     Dates: start: 20080701
  8. SENNOSIDES [Concomitant]
     Indication: CONSTIPATION
     Dosage: SENNOSIDES A+B CALCIUM
     Dates: start: 20080701
  9. PANTOPRAZOLE SODIUM [Concomitant]
     Indication: GASTRITIS PROPHYLAXIS
     Dosage: APO PANTOPRAZOLE
     Dates: start: 20080701
  10. PROCHLORPERAZINE [Concomitant]
  11. DECADRON [Concomitant]
     Dosage: TAKEN WITH CHEMO
  12. PLATINUM [Concomitant]
     Indication: PROPHYLAXIS
     Dosage: IMMUNOCAL PLATINUM
     Route: 065
     Dates: start: 20080301
  13. CATS CLAW [Concomitant]
     Indication: PROPHYLAXIS
     Route: 065
     Dates: start: 20080201
  14. CLINDASOL [Concomitant]
     Indication: DERMATITIS ACNEIFORM
     Dates: start: 20090423

REACTIONS (5)
  - ASTHENIA [None]
  - CHEST PAIN [None]
  - GENERAL PHYSICAL HEALTH DETERIORATION [None]
  - HAEMOPTYSIS [None]
  - NEUTROPENIA [None]
